FAERS Safety Report 13644412 (Version 1)
Quarter: 2017Q2

REPORT INFORMATION
  Report Type: Spontaneous
  Country: US (occurrence: US)
  Receive Date: 20170612
  Receipt Date: 20170612
  Transmission Date: 20170830
  Serious: No
  Sender: FDA-Public Use
  Company Number: US-ROCHE-1390830

PATIENT
  Sex: Female

DRUGS (1)
  1. XELODA [Suspect]
     Active Substance: CAPECITABINE
     Indication: NEOPLASM MALIGNANT
     Dosage: 500MG, 3 TABS BID 14 DAYS ON, 7 DAYS OFF
     Route: 048
     Dates: start: 20131231

REACTIONS (3)
  - Nausea [Unknown]
  - Diarrhoea [Unknown]
  - Constipation [Unknown]
